FAERS Safety Report 25942714 (Version 1)
Quarter: 2025Q4

REPORT INFORMATION
  Report Type: Report from Study
  Country: CN (occurrence: CN)
  Receive Date: 20251021
  Receipt Date: 20251021
  Transmission Date: 20260118
  Serious: Yes (Other)
  Sender: ROCHE
  Company Number: CN-ROCHE-10000412901

PATIENT

DRUGS (4)
  1. RITUXIMAB [Suspect]
     Active Substance: RITUXIMAB
     Indication: Nephrotic syndrome
     Dosage: MAXIMUM DOSE 500 MG,
     Route: 065
  2. RITUXIMAB [Suspect]
     Active Substance: RITUXIMAB
     Indication: Nephrotic syndrome
  3. MYCOPHENOLATE MOFETIL [Suspect]
     Active Substance: MYCOPHENOLATE MOFETIL
     Indication: Nephrotic syndrome
     Route: 048
  4. MYCOPHENOLATE MOFETIL [Suspect]
     Active Substance: MYCOPHENOLATE MOFETIL
     Indication: Nephrotic syndrome

REACTIONS (12)
  - Infusion related reaction [Recovering/Resolving]
  - Hypogammaglobulinaemia [Recovering/Resolving]
  - Granulocytopenia [Recovering/Resolving]
  - Infection [Recovering/Resolving]
  - Off label use [Unknown]
  - Agranulocytosis [Recovering/Resolving]
  - Upper respiratory tract infection [Recovering/Resolving]
  - Lower respiratory tract infection [Recovering/Resolving]
  - Gastrointestinal infection [Recovering/Resolving]
  - Skin infection [Recovering/Resolving]
  - Urinary tract infection [Recovering/Resolving]
  - Sepsis [Recovering/Resolving]
